FAERS Safety Report 23609042 (Version 3)
Quarter: 2024Q2

REPORT INFORMATION
  Report Type: Spontaneous
  Country: DE (occurrence: DE)
  Receive Date: 20240308
  Receipt Date: 20240510
  Transmission Date: 20240715
  Serious: Yes (Other)
  Sender: FDA-Public Use
  Company Number: DE-BEIGENE-BGN-2024-003268

PATIENT

DRUGS (5)
  1. BRUKINSA [Suspect]
     Active Substance: ZANUBRUTINIB
     Indication: Chronic lymphocytic leukaemia
     Dosage: DOSAGE 1-0-1
     Dates: start: 202304
  2. BRUKINSA [Suspect]
     Active Substance: ZANUBRUTINIB
     Dosage: DOSAGE 2-0-1
     Dates: start: 202305
  3. SULFAMETHOXAZOLE\TRIMETHOPRIM [Concomitant]
     Active Substance: SULFAMETHOXAZOLE\TRIMETHOPRIM
     Dosage: 1 TABLET MONDAY, WEDNESDAY, FRIDAY
  4. CANDESARTAN [Concomitant]
     Active Substance: CANDESARTAN
     Dosage: 8 MILLIGRAM 1-0-0
  5. AMLODIPINE [Concomitant]
     Active Substance: AMLODIPINE BESYLATE
     Dosage: 5 MILLIGRAM 1-0-1

REACTIONS (6)
  - Optic nerve injury [Unknown]
  - Age-related macular degeneration [Unknown]
  - Optic atrophy [Unknown]
  - Blindness [Unknown]
  - Optic disc drusen [Unknown]
  - Visual impairment [Unknown]

NARRATIVE: CASE EVENT DATE: 20231001
